FAERS Safety Report 23712140 (Version 3)
Quarter: 2024Q2

REPORT INFORMATION
  Report Type: Spontaneous
  Country: US (occurrence: US)
  Receive Date: 20240405
  Receipt Date: 20240520
  Transmission Date: 20240716
  Serious: No
  Sender: FDA-Public Use
  Company Number: US-PFIZER INC-202400072994

PATIENT
  Age: 14 Year
  Sex: Male
  Weight: 70.31 kg

DRUGS (4)
  1. NGENLA [Suspect]
     Active Substance: SOMATROGON-GHLA
     Indication: Blood growth hormone
     Dosage: UNK
     Dates: start: 20240315, end: 20240315
  2. NGENLA [Suspect]
     Active Substance: SOMATROGON-GHLA
     Dosage: 47 MG
     Dates: start: 20240322, end: 20240322
  3. NGENLA [Suspect]
     Active Substance: SOMATROGON-GHLA
     Dosage: 6.6 MG, WEEKLY
  4. SERTRALINE [Concomitant]
     Active Substance: SERTRALINE HYDROCHLORIDE
     Indication: Depression
     Dosage: UNK

REACTIONS (3)
  - Injection site pain [Unknown]
  - Needle issue [Unknown]
  - Device issue [Unknown]
